FAERS Safety Report 5056493-2 (Version None)
Quarter: 2006Q3

REPORT INFORMATION
  Report Type: 
  Country: None (occurrence: None)
  Receive Date: 20060720
  Receipt Date: 20060410
  Transmission Date: 20061208
  Serious: Yes (Life-Threatening, Other)
  Sender: FDA-Public Use
  Company Number: JP-BRISTOL-MYERS SQUIBB COMPANY-13345178

PATIENT
  Age: 88 Year
  Sex: Female

DRUGS (7)
  1. GATIFLOXACIN [Suspect]
     Indication: ARTHRITIS
     Route: 048
     Dates: start: 20060328, end: 20060401
  2. FLOMOX [Suspect]
     Indication: ARTHRITIS
     Route: 048
     Dates: start: 20060325, end: 20060327
  3. LASIX [Concomitant]
     Route: 048
     Dates: end: 20060402
  4. LASIX [Concomitant]
     Route: 041
     Dates: start: 20060403
  5. RISPERDAL [Concomitant]
     Route: 048
     Dates: end: 20060405
  6. SENNOSIDE [Concomitant]
     Route: 048
     Dates: end: 20060405
  7. TRAZODONE HCL [Concomitant]
     Route: 048
     Dates: end: 20060405

REACTIONS (6)
  - CONDITION AGGRAVATED [None]
  - DIABETIC HYPERGLYCAEMIC COMA [None]
  - DIALYSIS [None]
  - HYPERGLYCAEMIA [None]
  - NEPHROPATHY TOXIC [None]
  - RENAL FAILURE [None]
